FAERS Safety Report 6466512-4 (Version None)
Quarter: 2009Q4

REPORT INFORMATION
  Report Type: 
  Country: None (occurrence: None)
  Receive Date: 20091202
  Receipt Date: 20091123
  Transmission Date: 20100525
  Serious: Yes (Death, Life-Threatening, Hospitalization, Other)
  Sender: FDA-Public Use
  Company Number: DE-MEDIMMUNE-MEDI-0007626

PATIENT

DRUGS (1)
  1. SYNAGIS [Suspect]
     Route: 030
     Dates: end: 20081110

REACTIONS (1)
  - RESUSCITATION [None]
